FAERS Safety Report 4703047-0 (Version None)
Quarter: 2005Q2

REPORT INFORMATION
  Report Type: 
  Country: None (occurrence: None)
  Receive Date: 20050628
  Receipt Date: 20050628
  Transmission Date: 20051028
  Serious: Yes (Hospitalization)
  Sender: FDA-Public Use
  Company Number: None

PATIENT
  Age: 77 Year
  Sex: Female
  Weight: 52.2 kg

DRUGS (11)
  1. ASPIRIN [Suspect]
     Indication: CARDIAC DISORDER
     Dosage: 325 PO QD
     Route: 048
     Dates: end: 20050519
  2. CELEBREX [Suspect]
     Indication: BONE PAIN
     Dosage: 200 PO QD
     Route: 048
     Dates: end: 20050519
  3. DILTIAZEM [Concomitant]
  4. ENALAPRIL MALEATE [Concomitant]
  5. FOSAMAX [Concomitant]
  6. GLIPIZIDE [Concomitant]
  7. HYDROCHLOROTHIAZIDE [Concomitant]
  8. METFORMIN [Concomitant]
  9. NEURONTIN [Concomitant]
  10. RANITIDINE [Concomitant]
  11. ZOCOR [Concomitant]

REACTIONS (6)
  - FALL [None]
  - GASTRIC ULCER [None]
  - HAEMATEMESIS [None]
  - NAUSEA [None]
  - THROMBOSIS [None]
  - VOMITING [None]
